FAERS Safety Report 17948622 (Version 1)
Quarter: 2020Q2

REPORT INFORMATION
  Report Type: Spontaneous
  Country: US (occurrence: US)
  Receive Date: 20200626
  Receipt Date: 20200626
  Transmission Date: 20200714
  Serious: No
  Sender: FDA-Public Use
  Company Number: US-GLAXOSMITHKLINE-US2020AMR106679

PATIENT
  Sex: Female
  Weight: 112 kg

DRUGS (1)
  1. NICODERM CQ [Suspect]
     Active Substance: NICOTINE
     Indication: SMOKING CESSATION THERAPY
     Dosage: UNK
     Dates: start: 202006, end: 202006

REACTIONS (3)
  - Pain in extremity [Unknown]
  - Application site pain [Unknown]
  - Application site vesicles [Unknown]

NARRATIVE: CASE EVENT DATE: 202006
